FAERS Safety Report 21957637 (Version 4)
Quarter: 2023Q2

REPORT INFORMATION
  Report Type: Spontaneous
  Country: US (occurrence: US)
  Receive Date: 20230206
  Receipt Date: 20230515
  Transmission Date: 20230722
  Serious: Yes (Other)
  Sender: FDA-Public Use
  Company Number: US-PFIZER INC-PV202300022216

PATIENT
  Age: 46 Year
  Sex: Female

DRUGS (5)
  1. CIBINQO [Suspect]
     Active Substance: ABROCITINIB
     Indication: Neurodermatitis
     Dosage: 200 MG
     Route: 048
  2. CIBINQO [Suspect]
     Active Substance: ABROCITINIB
     Indication: Eczema
     Dosage: 100 MG
     Route: 048
  3. CIBINQO [Suspect]
     Active Substance: ABROCITINIB
     Indication: Lichen sclerosus
  4. CIBINQO [Suspect]
     Active Substance: ABROCITINIB
     Indication: Dermatitis atopic
  5. CIBINQO [Suspect]
     Active Substance: ABROCITINIB
     Indication: Rash erythematous

REACTIONS (3)
  - Hysterectomy [Unknown]
  - COVID-19 [Unknown]
  - Hot flush [Unknown]

NARRATIVE: CASE EVENT DATE: 20230101
